FAERS Safety Report 14026951 (Version 1)
Quarter: 2017Q3

REPORT INFORMATION
  Report Type: Spontaneous
  Country: IT (occurrence: IT)
  Receive Date: 20170929
  Receipt Date: 20170929
  Transmission Date: 20171128
  Serious: Yes (Hospitalization)
  Sender: FDA-Public Use
  Company Number: IT-ROCHE-2000309

PATIENT
  Age: 52 Year
  Sex: Female

DRUGS (7)
  1. CIPRALEX [Concomitant]
     Active Substance: ESCITALOPRAM OXALATE
     Dosage: 20 MG/ML 1 15 ML GLASS BOTTLE WITH PE DROPPER
     Route: 065
  2. COTAREG [Concomitant]
     Active Substance: HYDROCHLOROTHIAZIDE\VALSARTAN
     Dosage: 28 COATED TABLETS IN BLISTER
     Route: 065
  3. DEPAKIN [Concomitant]
     Active Substance: VALPROATE SODIUM
     Dosage: CHRONO 500 MG EXTENDED RELEASE TABLETS 30 TABLET
     Route: 065
  4. RIVOTRIL [Suspect]
     Active Substance: CLONAZEPAM
     Indication: INTENTIONAL SELF-INJURY
     Dosage: 2.5 MG/ML ORAL DROPS, SOLUTION; 10 ML BOTTLE
     Route: 048
     Dates: start: 20170427, end: 20170427
  5. TALOFEN [Suspect]
     Active Substance: PROMAZINE HYDROCHLORIDE
     Indication: INTENTIONAL SELF-INJURY
     Dosage: 4 G/100 ML ORAL DROPS, SOLUTION 30 ML BOTTLE
     Route: 048
     Dates: start: 20170427, end: 20170427
  6. EFEXOR [Concomitant]
     Active Substance: VENLAFAXINE HYDROCHLORIDE
     Dosage: 37.5 MG EXTENDED RELEASE RIGID CAPSULES 7 CAPSULE
     Route: 065
  7. SEROQUEL [Concomitant]
     Active Substance: QUETIAPINE FUMARATE
     Dosage: ^400 MG EXTENDED RELEASE TABLETS^ 60 TABLETS
     Route: 065

REACTIONS (4)
  - Drug abuse [Unknown]
  - Dysarthria [Unknown]
  - Sopor [Unknown]
  - Intentional self-injury [Unknown]

NARRATIVE: CASE EVENT DATE: 20170428
